FAERS Safety Report 6254776-1 (Version None)
Quarter: 2009Q3

REPORT INFORMATION
  Report Type: 
  Country: None (occurrence: None)
  Receive Date: 20090702
  Receipt Date: 20090622
  Transmission Date: 20100115
  Serious: Yes (Hospitalization)
  Sender: FDA-Public Use
  Company Number: FR-ELI_LILLY_AND_COMPANY-FR200906005972

PATIENT
  Age: 67 Year
  Sex: Female

DRUGS (4)
  1. OPTRUMA [Suspect]
     Dosage: 60 MG, DAILY (1/D)
     Route: 048
     Dates: start: 20060418, end: 20090321
  2. CACIT D3 [Concomitant]
  3. SEROPLEX [Concomitant]
  4. TANAKAN [Concomitant]

REACTIONS (2)
  - CEREBRAL ARTERIOSCLEROSIS [None]
  - ISCHAEMIC CEREBRAL INFARCTION [None]
